FAERS Safety Report 24578264 (Version 1)
Quarter: 2024Q4

REPORT INFORMATION
  Report Type: Spontaneous
  Country: FR (occurrence: FR)
  Receive Date: 20241105
  Receipt Date: 20241105
  Transmission Date: 20250114
  Serious: Yes (Other)
  Sender: JOHNSON AND JOHNSON
  Company Number: FR-AstraZeneca-CH-00725854A

PATIENT
  Age: 76 Year
  Sex: Male

DRUGS (4)
  1. ZYTIGA [Suspect]
     Active Substance: ABIRATERONE ACETATE
     Indication: Hormone-refractory prostate cancer
     Dosage: 1000 MILLIGRAM, QD
     Route: 048
     Dates: start: 20240326, end: 20240418
  2. ZYTIGA [Suspect]
     Active Substance: ABIRATERONE ACETATE
     Dosage: 1000 MILLIGRAM, QD
     Route: 048
     Dates: start: 20240326, end: 20240418
  3. OLAPARIB [Suspect]
     Active Substance: OLAPARIB
     Indication: Hormone-refractory prostate cancer
     Dosage: 600 MILLIGRAM
     Route: 048
     Dates: start: 20240326, end: 20240627
  4. OLAPARIB [Suspect]
     Active Substance: OLAPARIB
     Dosage: 600 MILLIGRAM
     Route: 048
     Dates: start: 20240326, end: 20240627

REACTIONS (2)
  - Renal failure [Recovered/Resolved]
  - Anaemia [Recovered/Resolved]

NARRATIVE: CASE EVENT DATE: 20240604
